FAERS Safety Report 9261973 (Version 2)
Quarter: 2013Q2

REPORT INFORMATION
  Report Type: Spontaneous
  Country: BR (occurrence: BR)
  Receive Date: 20130429
  Receipt Date: 20130514
  Transmission Date: 20140414
  Serious: Yes (Hospitalization)
  Sender: FDA-Public Use
  Company Number: BR-B.I. PHARMACEUTICALS,INC./RIDGEFIELD-2013-BR-00457BR

PATIENT
  Age: 67 Year
  Sex: Female
  Weight: 69 kg

DRUGS (8)
  1. SPIRIVA RESPIMAT [Suspect]
     Indication: CHRONIC OBSTRUCTIVE PULMONARY DISEASE
     Dosage: 5 MCG
     Dates: start: 2011
  2. CARBONATO DE CALCIO [Concomitant]
     Indication: OSTEOPOROSIS
     Dates: start: 2005
  3. ALENDRONATO [Concomitant]
     Indication: OSTEOPOROSIS
     Dates: start: 2005
  4. LEVOID [Concomitant]
     Indication: HYPOTHYROIDISM
     Dates: start: 2008
  5. CLARITROMICINA [Concomitant]
     Indication: CONDITION AGGRAVATED
     Dates: start: 20130417
  6. AEROLIN [Concomitant]
     Indication: CHRONIC OBSTRUCTIVE PULMONARY DISEASE
  7. PREDNISONA [Concomitant]
     Indication: HYPERSENSITIVITY
     Dates: start: 20130417
  8. OMEPRAZOL [Concomitant]
     Indication: OESOPHAGITIS

REACTIONS (12)
  - Lung infection [Recovered/Resolved]
  - Cough [Recovered/Resolved]
  - Increased bronchial secretion [Not Recovered/Not Resolved]
  - Pain in extremity [Recovered/Resolved]
  - Asthma [Not Recovered/Not Resolved]
  - Cardiac disorder [Not Recovered/Not Resolved]
  - Osteoporosis [Not Recovered/Not Resolved]
  - Breast mass [Not Recovered/Not Resolved]
  - Cyst [Not Recovered/Not Resolved]
  - Chest discomfort [Not Recovered/Not Resolved]
  - Dyspnoea [Not Recovered/Not Resolved]
  - Insomnia [Not Recovered/Not Resolved]
